FAERS Safety Report 4510815-7 (Version None)
Quarter: 2004Q4

REPORT INFORMATION
  Report Type: 
  Country: None (occurrence: None)
  Receive Date: 20041122
  Receipt Date: 20041112
  Transmission Date: 20050328
  Serious: Yes (Hospitalization)
  Sender: FDA-Public Use
  Company Number: 2004AP03938

PATIENT
  Age: 75 Year
  Sex: Male

DRUGS (3)
  1. CASODEX [Suspect]
     Indication: PROSTATE CANCER
     Dosage: 80 MG DAILY PO
     Route: 048
     Dates: start: 20040204, end: 20040707
  2. ZOLADEX [Suspect]
     Indication: PROSTATE CANCER
     Dosage: 3.6 MG Q4WK SQ
     Route: 058
     Dates: start: 20040204, end: 20040623
  3. OIF [Suspect]
     Indication: HEPATITIS C
     Dosage: 5 IU DAILY SQ
     Route: 058
     Dates: start: 20031009, end: 20040715

REACTIONS (3)
  - HOT FLUSH [None]
  - INTERSTITIAL LUNG DISEASE [None]
  - PROSTATE CANCER [None]
